FAERS Safety Report 20160939 (Version 1)
Quarter: 2021Q4

REPORT INFORMATION
  Report Type: Spontaneous
  Country: US (occurrence: US)
  Receive Date: 20211208
  Receipt Date: 20211208
  Transmission Date: 20220303
  Serious: No
  Sender: FDA-Public Use
  Company Number: US-BAUSCH-BL-2021-039861

PATIENT
  Age: 40 Year
  Sex: Female

DRUGS (1)
  1. ATRALIN [Suspect]
     Active Substance: TRETINOIN
     Indication: Acne
     Route: 061
     Dates: start: 20211124

REACTIONS (3)
  - Application site irritation [Not Recovered/Not Resolved]
  - Acne [Not Recovered/Not Resolved]
  - Application site dryness [Not Recovered/Not Resolved]

NARRATIVE: CASE EVENT DATE: 20211101
